FAERS Safety Report 17902158 (Version 1)
Quarter: 2020Q2

REPORT INFORMATION
  Report Type: Spontaneous
  Country: ES (occurrence: ES)
  Receive Date: 20200616
  Receipt Date: 20200616
  Transmission Date: 20200714
  Serious: Yes (Hospitalization)
  Sender: FDA-Public Use
  Company Number: ES-TAKEDA-2020TUS026494

PATIENT
  Age: 6 Year
  Sex: Female
  Weight: 22 kg

DRUGS (1)
  1. ENTYVIO [Suspect]
     Active Substance: VEDOLIZUMAB
     Indication: COLITIS ULCERATIVE
     Dosage: 150 MG (6,7 MG/KG/4 S) DESDE JULIO 2018
     Route: 042
     Dates: start: 201807, end: 20200514

REACTIONS (3)
  - Lipase increased [Unknown]
  - Product use issue [Unknown]
  - Gastroenteritis salmonella [Recovered/Resolved]

NARRATIVE: CASE EVENT DATE: 201807
